FAERS Safety Report 16106842 (Version 1)
Quarter: 2019Q1

REPORT INFORMATION
  Report Type: Spontaneous
  Country: US (occurrence: US)
  Receive Date: 20190322
  Receipt Date: 20190322
  Transmission Date: 20190418
  Serious: Yes (Disabling, Other)
  Sender: FDA-Public Use
  Company Number: US-SAOL THERAPEUTICS-0700586348

PATIENT
  Age: 36 Year
  Sex: Female
  Weight: 50.79 kg

DRUGS (13)
  1. GABAPENTIN. [Suspect]
     Active Substance: GABAPENTIN
     Dosage: UNK
     Route: 048
  2. PROPRANOLOL [Suspect]
     Active Substance: PROPRANOLOL HYDROCHLORIDE
     Dosage: UNK
     Route: 048
  3. LIORESAL [Suspect]
     Active Substance: BACLOFEN
     Dosage: 50 ?G, \DAY
     Route: 037
     Dates: start: 201404, end: 2014
  4. LIORESAL [Suspect]
     Active Substance: BACLOFEN
     Dosage: 90 ?G, \DAY
     Route: 037
     Dates: start: 2014
  5. ^PAIN MEDICATION^ [Suspect]
     Active Substance: UNSPECIFIED INGREDIENT
     Dosage: UNK
  6. BACLOFEN. [Suspect]
     Active Substance: BACLOFEN
     Dosage: UNK
     Route: 048
  7. SENNA [Suspect]
     Active Substance: SENNA LEAF\SENNOSIDES\SENNOSIDES A AND B
     Dosage: UNK
     Route: 048
  8. TEGRETOL [Suspect]
     Active Substance: CARBAMAZEPINE
     Dosage: UNK
     Route: 048
  9. UNSPECIFIED ORAL MEDICATION [Suspect]
     Active Substance: UNSPECIFIED INGREDIENT
     Dosage: 20 MG, 4X/DAY
     Route: 048
  10. LIORESAL [Suspect]
     Active Substance: BACLOFEN
     Indication: MULTIPLE SCLEROSIS
     Dosage: 25 ?G, \DAY
     Route: 037
     Dates: start: 201403, end: 2014
  11. OXYCODONE [Suspect]
     Active Substance: OXYCODONE
     Dosage: UNK
     Route: 048
  12. UNSPECIFIED ORAL MEDICATION [Suspect]
     Active Substance: UNSPECIFIED INGREDIENT
     Dosage: 10 MG, 3X/DAY
     Route: 048
  13. AVONEX [Suspect]
     Active Substance: INTERFERON BETA-1A
     Dosage: UNK
     Route: 048

REACTIONS (15)
  - Muscle spasticity [Recovered/Resolved]
  - Pain [Recovered/Resolved]
  - Cerebrospinal fluid leakage [Recovered/Resolved]
  - Pain of skin [Recovered/Resolved]
  - Implant site swelling [Recovered/Resolved]
  - Disorientation [Recovered/Resolved]
  - Implant site scar [Not Recovered/Not Resolved]
  - Implant site extravasation [Recovered/Resolved]
  - Therapy non-responder [Recovered/Resolved]
  - Implant site warmth [Recovered/Resolved]
  - Hypoaesthesia [Recovered/Resolved]
  - Meningitis bacterial [Recovered/Resolved]
  - Implant site infection [Recovered/Resolved]
  - Pyrexia [Recovered/Resolved]
  - Pseudomeningocele [Recovered/Resolved]

NARRATIVE: CASE EVENT DATE: 201403
